FAERS Safety Report 8830215 (Version 1)
Quarter: 2012Q4

REPORT INFORMATION
  Report Type: Spontaneous
  Country: US (occurrence: None)
  Receive Date: 20121009
  Receipt Date: 20121009
  Transmission Date: 20130627
  Serious: Yes (Disabling)
  Sender: FDA-Public Use
  Company Number: None

PATIENT
  Age: 34 Year
  Sex: Female
  Weight: 95.26 kg

DRUGS (2)
  1. METHYLPREDNISOLONE [Suspect]
     Indication: ALLERGIC REACTION
     Dosage: 1 dose
     Route: 030
     Dates: start: 20120518, end: 20120518
  2. METHYLPREDNISOLONE [Suspect]
     Indication: WASP STING
     Dosage: 1 dose
     Route: 030
     Dates: start: 20120518, end: 20120518

REACTIONS (7)
  - Product quality issue [None]
  - Feeling abnormal [None]
  - Dystonia [None]
  - Impaired work ability [None]
  - Spasmodic dysphonia [None]
  - Muscle spasms [None]
  - No therapeutic response [None]
